FAERS Safety Report 4870125-5 (Version None)
Quarter: 2005Q4

REPORT INFORMATION
  Report Type: 
  Country: None (occurrence: None)
  Receive Date: 20051227
  Receipt Date: 20051216
  Transmission Date: 20060501
  Serious: No
  Sender: FDA-Public Use
  Company Number: 33470

PATIENT
  Age: 45 Year
  Sex: Female

DRUGS (1)
  1. TRAVATAN [Suspect]
     Dosage: OPHT

REACTIONS (2)
  - MACULAR HOLE [None]
  - VISUAL ACUITY REDUCED [None]
